FAERS Safety Report 21859448 (Version 1)
Quarter: 2023Q1

REPORT INFORMATION
  Report Type: Spontaneous
  Country: US (occurrence: US)
  Receive Date: 20230113
  Receipt Date: 20230113
  Transmission Date: 20230418
  Serious: No
  Sender: FDA-Public Use
  Company Number: US-SANOFI-01440934

PATIENT
  Sex: Male

DRUGS (1)
  1. SELSUN BLUE MOISTURIZING [Suspect]
     Active Substance: SELENIUM SULFIDE
     Dosage: UNK

REACTIONS (3)
  - Dandruff [Unknown]
  - Condition aggravated [Unknown]
  - Drug ineffective [Unknown]
